FAERS Safety Report 7488970-9 (Version None)
Quarter: 2011Q1

REPORT INFORMATION
  Report Type: 
  Country: None (occurrence: None)
  Receive Date: 20110316
  Receipt Date: 20100908
  Transmission Date: 20110831
  Serious: Yes (Other)
  Sender: FDA-Public Use
  Company Number: 10-001299

PATIENT
  Age: 72 Year
  Sex: Female
  Weight: 68 kg

DRUGS (1)
  1. ESTRACE [Suspect]
     Indication: ATROPHIC VULVOVAGINITIS
     Dosage: 1 G, 2-3 TIMES PER WEEK, VAGINAL
     Route: 067
     Dates: start: 20080101, end: 20100101

REACTIONS (1)
  - BREAST CANCER IN SITU [None]
